FAERS Safety Report 5901107-X (Version None)
Quarter: 2008Q3

REPORT INFORMATION
  Report Type: 
  Country: None (occurrence: None)
  Receive Date: 20080929
  Receipt Date: 20080919
  Transmission Date: 20090109
  Serious: Yes (Other)
  Sender: FDA-Public Use
  Company Number: FR-AMGEN-US309561

PATIENT
  Age: 48 Year
  Sex: Female

DRUGS (2)
  1. ENBREL [Suspect]
     Indication: RHEUMATOID ARTHRITIS
     Dosage: UNKNOWN
     Route: 058
     Dates: end: 20071101
  2. CORTISONE [Concomitant]
     Dosage: UNKNOWN
     Route: 065

REACTIONS (2)
  - IRIDOCYCLITIS [None]
  - PSORIASIS [None]
